FAERS Safety Report 4907742-X (Version None)
Quarter: 2006Q1

REPORT INFORMATION
  Report Type: 
  Country: None (occurrence: None)
  Receive Date: 20060207
  Receipt Date: 20060125
  Transmission Date: 20060701
  Serious: Yes (Hospitalization)
  Sender: FDA-Public Use
  Company Number: 2006BI001511

PATIENT
  Age: 64 Year
  Sex: Male
  Weight: 87.0906 kg

DRUGS (4)
  1. AVONEX [Suspect]
     Indication: MULTIPLE SCLEROSIS
     Dosage: IM
     Route: 030
  2. ALBUTEROL [Concomitant]
  3. ADVAIR DISKUS 100/50 [Concomitant]
  4. VIAGRA [Concomitant]

REACTIONS (10)
  - CONDITION AGGRAVATED [None]
  - COUGH [None]
  - DIFFICULTY IN WALKING [None]
  - ERECTILE DYSFUNCTION [None]
  - HALLUCINATION, VISUAL [None]
  - HEART RATE INCREASED [None]
  - INTENTIONAL OVERDOSE [None]
  - STRESS [None]
  - SUICIDE ATTEMPT [None]
  - VISUAL DISTURBANCE [None]
